FAERS Safety Report 8217033-X (Version None)
Quarter: 2012Q1

REPORT INFORMATION
  Report Type: 
  Country: None (occurrence: None)
  Receive Date: 20120319
  Receipt Date: 20120308
  Transmission Date: 20120608
  Serious: No
  Sender: FDA-Public Use
  Company Number: US-BIOGENIDEC-2012BI008937

PATIENT
  Age: 49 Year
  Sex: Female

DRUGS (6)
  1. AVONEX [Suspect]
     Indication: MULTIPLE SCLEROSIS
     Route: 030
     Dates: start: 20060324
  2. ZITHROMAX [Concomitant]
     Indication: PHARYNGITIS STREPTOCOCCAL
     Route: 048
     Dates: start: 20111201, end: 20111201
  3. AMANTADINE HCL [Concomitant]
     Indication: GAIT DISTURBANCE
     Route: 048
     Dates: start: 20110101
  4. ZITHROMAX [Concomitant]
     Indication: INFLUENZA LIKE ILLNESS
     Route: 048
     Dates: start: 20111201, end: 20111201
  5. ZITHROMAX [Concomitant]
     Indication: EAR INFECTION
     Route: 048
     Dates: start: 20111201, end: 20111201
  6. AMPYRA [Concomitant]
     Indication: BALANCE DISORDER
     Route: 048

REACTIONS (6)
  - GAIT DISTURBANCE [None]
  - INFLUENZA LIKE ILLNESS [None]
  - PHARYNGITIS STREPTOCOCCAL [None]
  - MUSCULAR WEAKNESS [None]
  - EAR INFECTION [None]
  - TYMPANIC MEMBRANE PERFORATION [None]
